FAERS Safety Report 6186904-0 (Version None)
Quarter: 2009Q2

REPORT INFORMATION
  Report Type: 
  Country: None (occurrence: None)
  Receive Date: 20090512
  Receipt Date: 20090428
  Transmission Date: 20091009
  Serious: Yes (Death, Hospitalization)
  Sender: FDA-Public Use
  Company Number: JP-BAYER-200910696BYL

PATIENT
  Age: 44 Year
  Sex: Female
  Weight: 42 kg

DRUGS (11)
  1. FLUDARA [Suspect]
     Indication: ACUTE MYELOID LEUKAEMIA
     Dosage: AS USED: 15 MG/M2  UNIT DOSE: 50 MG
     Route: 042
     Dates: start: 20080602, end: 20080607
  2. ALKERAN [Concomitant]
     Indication: ACUTE MYELOID LEUKAEMIA
     Dosage: AS USED: 20 MG/M2
     Route: 042
     Dates: start: 20080605, end: 20080606
  3. BUSULFEX [Concomitant]
     Indication: ACUTE MYELOID LEUKAEMIA
     Dosage: AS USED: 3.2 MG/KG
     Route: 042
     Dates: start: 20080603, end: 20080604
  4. CYLOCIDE [Concomitant]
     Indication: ACUTE MYELOID LEUKAEMIA
     Dosage: AS USED: 60 MG
     Route: 037
     Dates: start: 20080602, end: 20080602
  5. CYLOCIDE [Concomitant]
     Dosage: AS USED: 20 MG
     Route: 041
     Dates: start: 20080530, end: 20080602
  6. PREDONINE INJ [Concomitant]
     Indication: ACUTE MYELOID LEUKAEMIA
     Dosage: AS USED: 15 MG
     Route: 037
     Dates: start: 20080602, end: 20080602
  7. METHOTREXATE [Concomitant]
     Indication: ACUTE MYELOID LEUKAEMIA
     Dosage: AS USED: 12 MG
     Route: 037
     Dates: start: 20080602, end: 20080602
  8. DEPAKENE [Concomitant]
     Indication: CONVULSION PROPHYLAXIS
     Dosage: TOTAL DAILY DOSE: 600 MG  UNIT DOSE: 200 MG
     Route: 048
     Dates: start: 20080601, end: 20080605
  9. CONCENTRATED RED CELLS [Concomitant]
     Indication: PACKED RED BLOOD CELL TRANSFUSION
     Route: 042
     Dates: start: 20080605, end: 20080811
  10. PLATELETS [Concomitant]
     Indication: PLATELET TRANSFUSION
     Route: 042
     Dates: start: 20080202, end: 20080811
  11. FRESH FROZEN PLASMA [Concomitant]
     Indication: BLOOD PRODUCT TRANSFUSION
     Route: 042
     Dates: start: 20080623, end: 20080811

REACTIONS (2)
  - RENAL FAILURE [None]
  - SEPSIS [None]
